FAERS Safety Report 21296277 (Version 1)
Quarter: 2022Q3

REPORT INFORMATION
  Report Type: Spontaneous
  Country: US (occurrence: US)
  Receive Date: 20220906
  Receipt Date: 20220906
  Transmission Date: 20221027
  Serious: No
  Sender: FDA-Public Use
  Company Number: US-CADILA HEALTHCARE LIMITED-US-ZYDUS-075742

PATIENT

DRUGS (1)
  1. MELOXICAM [Suspect]
     Active Substance: MELOXICAM
     Indication: Ankylosing spondylitis
     Dosage: 15 MILLIGRAM, QD
     Route: 048
     Dates: end: 20220214

REACTIONS (2)
  - Drug ineffective [Recovered/Resolved]
  - Inflammation [Not Recovered/Not Resolved]
